FAERS Safety Report 6378574-3 (Version None)
Quarter: 2009Q3

REPORT INFORMATION
  Report Type: 
  Country: None (occurrence: None)
  Receive Date: 20090921
  Receipt Date: 20090906
  Transmission Date: 20100115
  Serious: Yes (Hospitalization)
  Sender: FDA-Public Use
  Company Number: A-US2009-27373

PATIENT
  Age: 63 Year
  Sex: Female

DRUGS (4)
  1. TRACLEER [Suspect]
     Indication: RAYNAUD'S PHENOMENON
     Dosage: ORAL
     Route: 048
     Dates: start: 20090115, end: 20090903
  2. SILDENAFIL CITRATE [Concomitant]
  3. MORPHINE [Concomitant]
  4. PHENOBARBITAL TAB [Concomitant]

REACTIONS (7)
  - ALANINE AMINOTRANSFERASE INCREASED [None]
  - ASPARTATE AMINOTRANSFERASE INCREASED [None]
  - BLOOD ALKALINE PHOSPHATASE INCREASED [None]
  - DRUG TOXICITY [None]
  - LIVER FUNCTION TEST ABNORMAL [None]
  - MENTAL STATUS CHANGES [None]
  - OFF LABEL USE [None]
